FAERS Safety Report 15258458 (Version 1)
Quarter: 2018Q3

REPORT INFORMATION
  Report Type: Spontaneous
  Country: BR (occurrence: BR)
  Receive Date: 20180809
  Receipt Date: 20180809
  Transmission Date: 20181010
  Serious: Yes (Hospitalization)
  Sender: FDA-Public Use
  Company Number: BR-CELLTRION INC.-2018BR019425

PATIENT

DRUGS (1)
  1. REMSIMA [Suspect]
     Active Substance: INFLIXIMAB
     Indication: PRODUCT USED FOR UNKNOWN INDICATION
     Dosage: UNK
     Route: 065

REACTIONS (7)
  - Cough [Unknown]
  - Feeling abnormal [Unknown]
  - Drug dose omission [Unknown]
  - Rhinorrhoea [Unknown]
  - Influenza [Unknown]
  - Oropharyngeal discomfort [Unknown]
  - Diarrhoea [Unknown]
